FAERS Safety Report 4815455-8 (Version None)
Quarter: 2005Q4

REPORT INFORMATION
  Report Type: 
  Country: None (occurrence: None)
  Receive Date: 20051028
  Receipt Date: 20051028
  Transmission Date: 20060501
  Serious: Yes (Other)
  Sender: FDA-Public Use
  Company Number: None

PATIENT
  Age: 61 Year
  Sex: Female
  Weight: 74.8435 kg

DRUGS (2)
  1. ERLOTINIB [Suspect]
     Indication: BREAST CANCER METASTATIC
     Dosage: 150 MG PO
     Route: 048
     Dates: start: 20050506, end: 20051026
  2. DOCETAXEL [Suspect]
     Indication: BREAST CANCER METASTATIC
     Dosage: 35 MG/M2
     Dates: start: 20050506, end: 20051013

REACTIONS (2)
  - BLOOD CREATININE INCREASED [None]
  - BLOOD UREA INCREASED [None]
